FAERS Safety Report 7232365-X (Version None)
Quarter: 2011Q1

REPORT INFORMATION
  Report Type: 
  Country: None (occurrence: None)
  Receive Date: 20110119
  Receipt Date: 20110111
  Transmission Date: 20110831
  Serious: Yes (Other)
  Sender: FDA-Public Use
  Company Number: FR-JNJFOC-20101200121

PATIENT
  Sex: Male

DRUGS (8)
  1. REMINYL [Suspect]
     Indication: PRODUCT USED FOR UNKNOWN INDICATION
     Route: 048
  2. APROVEL [Concomitant]
     Indication: HYPERTENSION
     Route: 048
  3. REMINYL LP [Suspect]
     Route: 048
  4. CLOPIDOGREL [Concomitant]
     Indication: PRODUCT USED FOR UNKNOWN INDICATION
     Route: 048
  5. REMINYL LP [Suspect]
     Indication: PRODUCT USED FOR UNKNOWN INDICATION
     Route: 048
  6. AMLOR [Concomitant]
     Indication: HYPERTENSION
     Route: 048
  7. REMINYL [Suspect]
     Route: 048
  8. DEROXAT [Concomitant]
     Indication: DEPRESSION
     Route: 048

REACTIONS (3)
  - CONDITION AGGRAVATED [None]
  - INAPPROPRIATE SCHEDULE OF DRUG ADMINISTRATION [None]
  - DRUG DISPENSING ERROR [None]
